FAERS Safety Report 7411622-8 (Version None)
Quarter: 2011Q2

REPORT INFORMATION
  Report Type: 
  Country: None (occurrence: None)
  Receive Date: 20110413
  Receipt Date: 20110330
  Transmission Date: 20111010
  Serious: Yes (Hospitalization)
  Sender: FDA-Public Use
  Company Number: PL-JNJFOC-20110402008

PATIENT
  Age: 78 Year
  Sex: Female

DRUGS (6)
  1. RISPERIDONE [Suspect]
     Indication: HALLUCINATION, VISUAL
     Route: 065
  2. RISPERIDONE [Suspect]
     Indication: MOOD ALTERED
     Route: 065
  3. FLUOXETINE [Suspect]
     Indication: MOOD ALTERED
     Route: 065
  4. FLUOXETINE [Suspect]
     Indication: HALLUCINATION, VISUAL
     Route: 065
  5. DOXEPIN [Suspect]
     Indication: HALLUCINATION, VISUAL
     Route: 065
  6. DOXEPIN [Suspect]
     Indication: MOOD ALTERED
     Route: 065

REACTIONS (6)
  - EXTRAPYRAMIDAL DISORDER [None]
  - DRUG INEFFECTIVE [None]
  - INSOMNIA [None]
  - SUICIDAL IDEATION [None]
  - WEIGHT DECREASED [None]
  - DECREASED APPETITE [None]
